FAERS Safety Report 20262870 (Version 2)
Quarter: 2022Q3

REPORT INFORMATION
  Report Type: Report from Study
  Country: CA (occurrence: CA)
  Receive Date: 20211231
  Receipt Date: 20220902
  Transmission Date: 20221027
  Serious: Yes (Hospitalization, Other)
  Sender: FDA-Public Use
  Company Number: CA-JNJFOC-20210452040

PATIENT
  Age: 30 Year
  Sex: Female
  Weight: 68 kg

DRUGS (4)
  1. REMICADE [Suspect]
     Active Substance: INFLIXIMAB
     Indication: Crohn^s disease
     Dosage: EXPIRATION DATE 31-DEC-2024
     Route: 042
     Dates: start: 20181204
  2. prednisone forte ophtalmique [Concomitant]
     Indication: Product used for unknown indication
     Route: 065
  3. CEFUROXIME [Concomitant]
     Active Substance: CEFUROXIME
     Indication: Product used for unknown indication
     Route: 065
  4. CIPROFLOXACIN HYDROCHLORIDE [Concomitant]
     Active Substance: CIPROFLOXACIN HYDROCHLORIDE
     Indication: Product used for unknown indication
     Dosage: 4 DROPS TWICE A DAY.
     Route: 065

REACTIONS (8)
  - Amniotic fluid volume decreased [Unknown]
  - Hospitalisation [Unknown]
  - Streptococcal infection [Unknown]
  - Exposure during pregnancy [Recovered/Resolved]
  - Suppressed lactation [Unknown]
  - Episcleritis [Unknown]
  - Psoriasis [Not Recovered/Not Resolved]
  - Off label use [Unknown]

NARRATIVE: CASE EVENT DATE: 20180101
